FAERS Safety Report 18937717 (Version 10)
Quarter: 2022Q1

REPORT INFORMATION
  Report Type: Report from Study
  Country: GB (occurrence: GB)
  Receive Date: 20210224
  Receipt Date: 20220330
  Transmission Date: 20220423
  Serious: Yes (Hospitalization, Other)
  Sender: FDA-Public Use
  Company Number: GB-ROCHE-1245830

PATIENT
  Age: 38 Year
  Sex: Female
  Weight: 68 kg

DRUGS (26)
  1. TRASTUZUMAB [Suspect]
     Active Substance: TRASTUZUMAB
     Indication: Breast cancer
     Dosage: 546 MILLIGRAM, CYCLIC: EVERY 3 WEEKS (FORM STRENGTH: 8 MG/KG) STARTED ON 16JUL2013
     Route: 042
  2. TRASTUZUMAB [Suspect]
     Active Substance: TRASTUZUMAB
     Indication: HER2 positive breast cancer
     Dosage: 546 MG MOST RECENT DOSE ON 16/JUL/2013.
     Route: 041
  3. DOCETAXEL [Suspect]
     Active Substance: DOCETAXEL
     Indication: Breast cancer
     Dosage: 190 MILLIGRAM, CYCLIC, Q3W (FORM STRENGTH: 100 MG/M2) STARTED ON 16JUL2013
     Route: 042
     Dates: start: 20130716
  4. DOCETAXEL [Suspect]
     Active Substance: DOCETAXEL
     Indication: HER2 positive breast cancer
  5. EPIRUBICIN [Suspect]
     Active Substance: EPIRUBICIN
     Indication: Breast cancer
     Dosage: 190 MG (MOST RECENT DOSE PRIOR TO AE 25/JUN/2013)
     Route: 042
     Dates: start: 20130514, end: 20130625
  6. EPIRUBICIN [Suspect]
     Active Substance: EPIRUBICIN
     Indication: Breast cancer
  7. EPIRUBICIN [Suspect]
     Active Substance: EPIRUBICIN
     Indication: HER2 positive breast cancer
  8. PERTUZUMAB [Suspect]
     Active Substance: PERTUZUMAB
     Indication: Breast cancer
     Dosage: UNK UNK, Q3W
     Route: 042
  9. PERTUZUMAB [Suspect]
     Active Substance: PERTUZUMAB
     Dosage: 546 MILLIGRAM, Q3W (UNK Q3W INFUSION, SOLUTION)
     Route: 042
     Dates: start: 20130716
  10. FLUOROURACIL [Suspect]
     Active Substance: FLUOROURACIL
     Indication: Breast cancer
     Dosage: 900 MILLIGRAM, 500 MG/M2 (LAST DOSE PRIOR TO SAE: 25/JUN/2013)
     Route: 042
     Dates: start: 20130514, end: 20130625
  11. FLUOROURACIL [Suspect]
     Active Substance: FLUOROURACIL
     Indication: HER2 positive breast cancer
  12. CYCLOPHOSPHAMIDE [Suspect]
     Active Substance: CYCLOPHOSPHAMIDE
     Indication: Breast cancer
     Dosage: 900 MILLIGRAM, 500 MG/M2 (LAST DOSE PRIOR TO SAE: 25/JUN/2013)
     Route: 042
     Dates: start: 20130514, end: 20130625
  13. CYCLOPHOSPHAMIDE [Suspect]
     Active Substance: CYCLOPHOSPHAMIDE
     Indication: HER2 positive breast cancer
     Dosage: UNK
     Route: 042
  14. ONDANSETRON [Concomitant]
     Active Substance: ONDANSETRON
     Dosage: 16 MILLIGRAM
     Route: 065
     Dates: start: 20130514
  15. DOMPERIDONE [Concomitant]
     Active Substance: DOMPERIDONE
     Dosage: 80 MILLIGRAM
     Route: 065
     Dates: start: 20130514
  16. DOMPERIDONE [Concomitant]
     Active Substance: DOMPERIDONE
     Dosage: 40 MILLIGRAM
     Route: 065
     Dates: start: 20130715
  17. DOMPERIDONE [Concomitant]
     Active Substance: DOMPERIDONE
     Dosage: 40 MILLIGRAM
     Route: 065
     Dates: start: 20130514
  18. DEXAMETHASONE [Concomitant]
     Active Substance: DEXAMETHASONE
     Dosage: 8 MILLIGRAM (ALSO TOOK FROM 15-JUL-2013 TO 17-JUL-2013)
     Route: 065
     Dates: start: 20130514
  19. DEXAMETHASONE [Concomitant]
     Active Substance: DEXAMETHASONE
     Dosage: 16 MILLIGRAM (ALSO TOOK FROM 15-JUL-2013 TO 17-JUL-2013)
     Route: 065
     Dates: start: 20130715, end: 20130717
  20. DEXAMETHASONE [Concomitant]
     Active Substance: DEXAMETHASONE
     Dosage: UNK
     Route: 065
     Dates: start: 20130514
  21. DEXAMETHASONE [Concomitant]
     Active Substance: DEXAMETHASONE
     Dosage: 40 MILLIGRAM, TID
     Route: 065
     Dates: start: 20130715
  22. DEXAMETHASONE [Concomitant]
     Active Substance: DEXAMETHASONE
     Dosage: 40 MILLIGRAM, TID
     Route: 065
     Dates: start: 20130715, end: 20130717
  23. PEGFILGRASTIM [Concomitant]
     Active Substance: PEGFILGRASTIM
     Dosage: 6 MILLIGRAM
     Route: 065
     Dates: start: 20130515
  24. PEGFILGRASTIM [Concomitant]
     Active Substance: PEGFILGRASTIM
     Dosage: UNK
     Dates: start: 20130515
  25. ACETAMINOPHEN [Concomitant]
     Active Substance: ACETAMINOPHEN
     Dosage: 4000 MILLIGRAM
     Route: 065
     Dates: start: 20130717
  26. ACETAMINOPHEN [Concomitant]
     Active Substance: ACETAMINOPHEN
     Dosage: UNK
     Dates: start: 20130717

REACTIONS (6)
  - Fatigue [Recovered/Resolved]
  - Neutropenia [Recovered/Resolved]
  - Vomiting [Recovered/Resolved]
  - Myalgia [Unknown]
  - Arthralgia [Unknown]
  - Off label use [Unknown]

NARRATIVE: CASE EVENT DATE: 20130626
